APPROVED DRUG PRODUCT: GABAPENTIN
Active Ingredient: GABAPENTIN
Strength: 100MG
Dosage Form/Route: CAPSULE;ORAL
Application: A075485 | Product #003
Applicant: WATSON LABORATORIES INC
Approved: May 11, 2007 | RLD: No | RS: No | Type: DISCN